FAERS Safety Report 8086105-5 (Version None)
Quarter: 2012Q1

REPORT INFORMATION
  Report Type: 
  Country: None (occurrence: None)
  Receive Date: 20120128
  Receipt Date: 20110413
  Transmission Date: 20120608
  Serious: No
  Sender: FDA-Public Use
  Company Number: US-ABBOTT-11P-163-0718926-00

PATIENT
  Sex: Female
  Weight: 50.848 kg

DRUGS (7)
  1. HUMIRA [Suspect]
     Dosage: INSTEAD OF EVERY 2 WEEK DOSING, PRN IF FEELING WELL
  2. HUMIRA [Suspect]
     Indication: RHEUMATOID ARTHRITIS
     Dates: start: 20080101
  3. LOSARTAN POTASSIUM [Concomitant]
     Indication: HYPERTENSION
  4. UNNAMED ANTIHYPERTENSIVE [Concomitant]
     Indication: HYPERTENSION
  5. NEXIUM [Concomitant]
     Indication: HIATUS HERNIA
  6. AZOPT [Concomitant]
     Indication: GLAUCOMA
     Route: 047
  7. ALPHAGAN [Concomitant]
     Indication: GLAUCOMA

REACTIONS (1)
  - ALOPECIA [None]
